FAERS Safety Report 25758425 (Version 1)
Quarter: 2025Q3

REPORT INFORMATION
  Report Type: Spontaneous
  Country: US (occurrence: US)
  Receive Date: 20250904
  Receipt Date: 20250904
  Transmission Date: 20251020
  Serious: No
  Sender: BRISTOL-MYERS SQUIBB COMPANY
  Company Number: US-BRISTOL-MYERS SQUIBB COMPANY-2025-122210

PATIENT
  Age: 81 Year
  Sex: Female
  Weight: 59.87 kg

DRUGS (1)
  1. OPDIVO [Suspect]
     Active Substance: NIVOLUMAB
     Indication: Non-small cell lung cancer
     Dosage: INJECTION; TOTAL OF 4 DOSES
     Dates: start: 20250610

REACTIONS (2)
  - Hepatic enzyme increased [Unknown]
  - Therapy interrupted [Unknown]
